FAERS Safety Report 7505833-0 (Version None)
Quarter: 2011Q2

REPORT INFORMATION
  Report Type: 
  Country: None (occurrence: None)
  Receive Date: 20110526
  Receipt Date: 20110516
  Transmission Date: 20111010
  Serious: Yes (Hospitalization, Other)
  Sender: FDA-Public Use
  Company Number: US-ELI_LILLY_AND_COMPANY-US201105004828

PATIENT
  Sex: Female

DRUGS (12)
  1. NORVASC [Concomitant]
     Dosage: 5 MG, UNK
  2. CHLORPROPAMIDE [Concomitant]
     Dosage: 1000 MG, BID
  3. EVISTA [Suspect]
     Dosage: 60 MG, QD
  4. NIASPAN [Concomitant]
     Dosage: 500 MG, UNK
  5. ASPIRIN [Concomitant]
     Dosage: 81 MG, BID
  6. MULTI-VITAMIN [Concomitant]
  7. LISINOPRIL [Concomitant]
     Dosage: 40 MG, UNK
  8. CRESTOR [Concomitant]
     Dosage: 20 MG, UNK
  9. OXYBUTYNIN [Concomitant]
     Indication: BLADDER DISORDER
     Dosage: 5 MG, UNK
  10. METOPROLOL TARTRATE [Concomitant]
     Dosage: 25 MG, UNK
  11. LOVAZA [Concomitant]
     Dosage: 1000 MG, BID
  12. TIMOLOL MALEATE [Concomitant]
     Dosage: UNK
     Route: 047

REACTIONS (4)
  - FLUID RETENTION [None]
  - BREAST CYST [None]
  - CORONARY ARTERY OCCLUSION [None]
  - DYSPNOEA EXERTIONAL [None]
